FAERS Safety Report 25682120 (Version 1)
Quarter: 2025Q3

REPORT INFORMATION
  Report Type: Spontaneous
  Country: US (occurrence: US)
  Receive Date: 20250814
  Receipt Date: 20250814
  Transmission Date: 20251021
  Serious: No
  Sender: MERCK SHARP & DOHME LLC
  Company Number: US-009507513-166826

PATIENT
  Age: 76 Year
  Sex: Male

DRUGS (1)
  1. NOXAFIL [Suspect]
     Active Substance: POSACONAZOLE
     Indication: Candida infection
     Dosage: DOSE DESCRIPTION : 400 MG, BID
     Route: 048

REACTIONS (1)
  - Drug ineffective [Unknown]
